FAERS Safety Report 8463700-2 (Version None)
Quarter: 2012Q2

REPORT INFORMATION
  Report Type: 
  Country: None (occurrence: None)
  Receive Date: 20120625
  Receipt Date: 20120618
  Transmission Date: 20120825
  Serious: Yes (Life-Threatening, Hospitalization, Other)
  Sender: FDA-Public Use
  Company Number: JP-CELGENEUS-087-50794-11101761

PATIENT
  Sex: Male
  Weight: 68 kg

DRUGS (24)
  1. GLAKAY [Concomitant]
     Dosage: 45 MILLIGRAM
     Route: 048
     Dates: start: 20110530
  2. CEFMETAZOLE SODIUM [Concomitant]
     Route: 065
     Dates: start: 20110818, end: 20110826
  3. VIDAZA [Suspect]
     Dosage: 75 MILLIGRAM/SQ. METER
     Route: 058
     Dates: start: 20111219, end: 20111228
  4. VIDAZA [Suspect]
     Dosage: 75 MILLIGRAM/SQ. METER
     Route: 058
     Dates: start: 20120124, end: 20120201
  5. EXJADE [Concomitant]
     Route: 065
     Dates: start: 20111020
  6. DECADRON [Concomitant]
     Dosage: 4 MILLIGRAM
     Route: 048
     Dates: start: 20110530, end: 20110605
  7. DECADRON [Concomitant]
     Dosage: 4 MILLIGRAM
     Route: 048
     Dates: start: 20110801, end: 20110809
  8. DECADRON [Concomitant]
     Dosage: 4 MILLIGRAM
     Route: 048
     Dates: start: 20111107, end: 20111115
  9. KYTRIL [Concomitant]
     Dosage: 2 MILLIGRAM
     Route: 048
     Dates: start: 20111219, end: 20111228
  10. VIDAZA [Suspect]
     Dosage: 75 MILLIGRAM/SQ. METER
     Route: 058
     Dates: start: 20110801, end: 20110809
  11. KYTRIL [Concomitant]
     Dosage: 2 MILLIGRAM
     Route: 048
     Dates: start: 20120124, end: 20120201
  12. VIDAZA [Suspect]
     Dosage: 75 MILLIGRAM/SQ. METER
     Route: 058
     Dates: start: 20110630, end: 20110706
  13. VIDAZA [Suspect]
     Dosage: 75 MILLIGRAM/SQ. METER
     Route: 058
     Dates: start: 20111107, end: 20111115
  14. KYTRIL [Concomitant]
     Dosage: 2 MILLIGRAM
     Route: 048
     Dates: start: 20111107, end: 20111115
  15. AMLODIPINE [Concomitant]
     Dosage: 2.5 MILLIGRAM
     Route: 048
     Dates: start: 20110607, end: 20110616
  16. DECADRON [Concomitant]
     Dosage: 4 MILLIGRAM
     Route: 048
     Dates: start: 20111219, end: 20111228
  17. PRIMOBOLAN-DEPOT INJ [Concomitant]
     Dosage: 15 MILLIGRAM
     Route: 048
     Dates: start: 20110530, end: 20110615
  18. PRIMOBOLAN-DEPOT INJ [Concomitant]
     Dosage: 5 MILLIGRAM
     Route: 048
     Dates: start: 20110609, end: 20110615
  19. VIDAZA [Suspect]
     Dosage: 75 MILLIGRAM/SQ. METER
     Route: 058
     Dates: start: 20110530, end: 20110605
  20. DECADRON [Concomitant]
     Dosage: 4 MILLIGRAM
     Route: 048
     Dates: start: 20120126, end: 20120201
  21. KYTRIL [Concomitant]
     Dosage: 2 MILLIGRAM
     Route: 048
     Dates: start: 20110530, end: 20110605
  22. KYTRIL [Concomitant]
     Dosage: 2 MILLIGRAM
     Route: 048
     Dates: start: 20110801, end: 20110809
  23. ROCALTROL [Concomitant]
     Dosage: .5 MICROGRAM
     Route: 048
     Dates: start: 20110530
  24. MAGMITT [Concomitant]
     Route: 065
     Dates: start: 20110609, end: 20110615

REACTIONS (6)
  - FEBRILE NEUTROPENIA [None]
  - HYPERTENSION [None]
  - PLATELET COUNT DECREASED [None]
  - WHITE BLOOD CELL COUNT DECREASED [None]
  - SERUM FERRITIN INCREASED [None]
  - NEUTROPHIL COUNT DECREASED [None]
